FAERS Safety Report 10301094 (Version 1)
Quarter: 2014Q3

REPORT INFORMATION
  Report Type: Spontaneous
  Country: US (occurrence: US)
  Receive Date: 20140714
  Receipt Date: 20140714
  Transmission Date: 20150326
  Serious: Yes (Other)
  Sender: FDA-Public Use
  Company Number: US-AMGEN INC.-USASP2014052079

PATIENT
  Age: 51 Year
  Sex: Female

DRUGS (1)
  1. ENBREL [Suspect]
     Active Substance: ETANERCEPT
     Indication: RHEUMATOID ARTHRITIS
     Dosage: 50 MG, QWK
     Route: 065
     Dates: start: 20110117

REACTIONS (19)
  - Road traffic accident [Recovered/Resolved]
  - Laceration [Not Recovered/Not Resolved]
  - Head discomfort [Not Recovered/Not Resolved]
  - Joint injury [Recovered/Resolved]
  - Blood urine present [Not Recovered/Not Resolved]
  - Arthritis [Not Recovered/Not Resolved]
  - Scar [Not Recovered/Not Resolved]
  - Limb injury [Recovered/Resolved]
  - Tendon injury [Recovered/Resolved]
  - Peripheral swelling [Not Recovered/Not Resolved]
  - Haemorrhage [Not Recovered/Not Resolved]
  - Increased tendency to bruise [Not Recovered/Not Resolved]
  - Skin mass [Not Recovered/Not Resolved]
  - Renal cyst [Not Recovered/Not Resolved]
  - Nodule [Not Recovered/Not Resolved]
  - Joint crepitation [Not Recovered/Not Resolved]
  - Calcinosis [Not Recovered/Not Resolved]
  - Migraine [Not Recovered/Not Resolved]
  - Injection site erythema [Recovered/Resolved]

NARRATIVE: CASE EVENT DATE: 2012
